FAERS Safety Report 6153044-6 (Version None)
Quarter: 2009Q2

REPORT INFORMATION
  Report Type: 
  Country: None (occurrence: None)
  Receive Date: 20090413
  Receipt Date: 20090407
  Transmission Date: 20091009
  Serious: No
  Sender: FDA-Public Use
  Company Number: US-B.I. PHARMACEUTICALS,INC./RIDGEFIELD-2009-BP-04337BP

PATIENT
  Sex: Female

DRUGS (3)
  1. SPIRIVA [Suspect]
     Route: 055
  2. PROVENTIL [Concomitant]
     Route: 055
  3. ADVAIR HFA [Concomitant]
     Route: 055

REACTIONS (1)
  - BREATH ODOUR [None]
